FAERS Safety Report 15202665 (Version 3)
Quarter: 2020Q3

REPORT INFORMATION
  Report Type: Report from Study
  Country: IT (occurrence: IT)
  Receive Date: 20180726
  Receipt Date: 20200730
  Transmission Date: 20201102
  Serious: Yes (Other)
  Sender: FDA-Public Use
  Company Number: IT-AUROBINDO-AUR-APL-2017-37843

PATIENT
  Age: 53 Year
  Sex: Female

DRUGS (12)
  1. AMOXICILLIN. [Suspect]
     Active Substance: AMOXICILLIN
     Indication: PRODUCT USED FOR UNKNOWN INDICATION
     Dosage: UNK
     Route: 065
  2. PANACEF [Suspect]
     Active Substance: CEFACLOR
     Dosage: 5 PERCENT
     Route: 061
  3. DURACEF (CEFADROXIL) [Suspect]
     Active Substance: CEFADROXIL
     Indication: PRODUCT USED FOR UNKNOWN INDICATION
     Dosage: 2 MG/ML
     Route: 023
  4. DURACEF (CEFADROXIL) [Suspect]
     Active Substance: CEFADROXIL
     Dosage: 20 MG/ML
     Route: 023
  5. KEFORAL [Suspect]
     Active Substance: CEPHALEXIN
     Dosage: 2 MG/ML
     Route: 023
  6. PANACEF [Suspect]
     Active Substance: CEFACLOR
     Indication: PRODUCT USED FOR UNKNOWN INDICATION
     Dosage: 2 MG/ML IN 0.9% SODIUM
     Route: 023
  7. DURACEF (CEFADROXIL) [Suspect]
     Active Substance: CEFADROXIL
     Dosage: UNK
  8. KEFORAL [Suspect]
     Active Substance: CEPHALEXIN
     Dosage: 20 MG/ML IN 0.9% SODIUM CHLORIDE
     Route: 023
  9. PANACEF [Suspect]
     Active Substance: CEFACLOR
     Dosage: 20 MG/ML
     Route: 023
  10. AMPICILLIN [Suspect]
     Active Substance: AMPICILLIN
     Indication: PRODUCT USED FOR UNKNOWN INDICATION
     Dosage: UNK
     Route: 065
  11. AMOXICILLIN+CLAVULANIC ACID [Suspect]
     Active Substance: AMOXICILLIN\CLAVULANIC ACID
     Indication: PRODUCT USED FOR UNKNOWN INDICATION
     Dosage: UNK
     Route: 065
  12. KEFORAL [Suspect]
     Active Substance: CEPHALEXIN
     Indication: PRODUCT USED FOR UNKNOWN INDICATION
     Dosage: 5 PERCENT
     Route: 061

REACTIONS (4)
  - Type IV hypersensitivity reaction [Unknown]
  - Therapeutic product cross-reactivity [Unknown]
  - Rash maculo-papular [Unknown]
  - Oedema [Unknown]
